FAERS Safety Report 13644881 (Version 1)
Quarter: 2017Q2

REPORT INFORMATION
  Report Type: Spontaneous
  Country: US (occurrence: US)
  Receive Date: 20170612
  Receipt Date: 20170612
  Transmission Date: 20170830
  Serious: No
  Sender: FDA-Public Use
  Company Number: US-ROCHE-797658

PATIENT
  Age: 63 Year

DRUGS (5)
  1. XELODA [Suspect]
     Active Substance: CAPECITABINE
     Indication: BREAST CANCER METASTATIC
     Route: 048
  2. XELODA [Suspect]
     Active Substance: CAPECITABINE
     Dosage: 3 WEEKS ON ONE WEEK OFF
     Route: 048
     Dates: start: 20090902, end: 20100201
  3. TAXOTERE [Suspect]
     Active Substance: DOCETAXEL
     Indication: BREAST CANCER METASTATIC
     Route: 065
  4. XELODA [Suspect]
     Active Substance: CAPECITABINE
     Dosage: ONE WEEK ON ONE WEEK OFF.
     Route: 048
  5. HERCEPTIN [Concomitant]
     Active Substance: TRASTUZUMAB
     Indication: BREAST CANCER METASTATIC
     Route: 042

REACTIONS (10)
  - Peripheral swelling [Unknown]
  - Pain in extremity [Unknown]
  - Stomatitis [Unknown]
  - Muscle spasms [Unknown]
  - Product quality issue [Unknown]
  - Lip blister [Unknown]
  - Feeding disorder [Unknown]
  - Pain in extremity [Unknown]
  - Feeling hot [Unknown]
  - Incorrect product storage [Unknown]

NARRATIVE: CASE EVENT DATE: 20110803
